FAERS Safety Report 5063329-2 (Version None)
Quarter: 2006Q3

REPORT INFORMATION
  Report Type: 
  Country: None (occurrence: None)
  Receive Date: 20060724
  Receipt Date: 20060717
  Transmission Date: 20061208
  Serious: Yes (Disabling, Other)
  Sender: FDA-Public Use
  Company Number: HQWYE103414MAR05

PATIENT
  Age: 53 Year
  Sex: Female
  Weight: 63.56 kg

DRUGS (2)
  1. EFFEXOR XR [Suspect]
     Indication: HOT FLUSH
     Dosage: 150 MG 1X PER 1 DAY, ORAL
     Route: 048
     Dates: start: 20050305, end: 20050301
  2. EFFEXOR XR [Suspect]
     Indication: OFF LABEL USE
     Dosage: 150 MG 1X PER 1 DAY, ORAL
     Route: 048
     Dates: start: 20050305, end: 20050301

REACTIONS (13)
  - COMMUNICATION DISORDER [None]
  - DEPRESSION [None]
  - DIZZINESS [None]
  - DRUG WITHDRAWAL SYNDROME [None]
  - FEAR [None]
  - LIBIDO INCREASED [None]
  - NERVOUSNESS [None]
  - OFF LABEL USE [None]
  - PARANOIA [None]
  - PSYCHOTIC DISORDER [None]
  - SOCIAL AVOIDANT BEHAVIOUR [None]
  - SUICIDAL IDEATION [None]
  - UNEVALUABLE EVENT [None]
